FAERS Safety Report 20973078 (Version 7)
Quarter: 2022Q4

REPORT INFORMATION
  Report Type: Report from Study
  Country: US (occurrence: US)
  Receive Date: 20220617
  Receipt Date: 20221022
  Transmission Date: 20230113
  Serious: Yes (Hospitalization, Other)
  Sender: FDA-Public Use
  Company Number: US-NOVARTISPH-NVSC2022US139250

PATIENT
  Age: 65 Year
  Sex: Male
  Weight: 103.87 kg

DRUGS (1)
  1. ENTRESTO [Suspect]
     Active Substance: SACUBITRIL\VALSARTAN
     Indication: Product used for unknown indication
     Dosage: 1 DOSAGE FORM, BID (24/26 MG)
     Route: 048
     Dates: start: 202112

REACTIONS (6)
  - Fluid retention [Recovering/Resolving]
  - Chest pain [Unknown]
  - Procedural pain [Unknown]
  - Weight decreased [Unknown]
  - Palpitations [Unknown]
  - Cough [Unknown]

NARRATIVE: CASE EVENT DATE: 20220404
